FAERS Safety Report 6674650-6 (Version None)
Quarter: 2010Q2

REPORT INFORMATION
  Report Type: 
  Country: None (occurrence: None)
  Receive Date: 20100409
  Receipt Date: 20100331
  Transmission Date: 20101027
  Serious: Yes (Death, Hospitalization)
  Sender: FDA-Public Use
  Company Number: GB-JNJFOC-20100207915

PATIENT
  Age: 74 Year
  Sex: Male
  Weight: 46 kg

DRUGS (6)
  1. REMICADE [Suspect]
     Indication: RHEUMATOID ARTHRITIS
     Route: 042
  2. METHOTREXATE [Concomitant]
  3. FOLIC ACID [Concomitant]
  4. PREDNISOLONE [Concomitant]
  5. INFUMORPH [Concomitant]
  6. AMITRIPTYLINE HCL [Concomitant]

REACTIONS (3)
  - CANDIDA PNEUMONIA [None]
  - PNEUMONIA [None]
  - PULMONARY FIBROSIS [None]
